FAERS Safety Report 13316353 (Version 1)
Quarter: 2017Q1

REPORT INFORMATION
  Report Type: Spontaneous
  Country: DE (occurrence: DE)
  Receive Date: 20170310
  Receipt Date: 20170310
  Transmission Date: 20170428
  Serious: Yes (Death, Hospitalization, Other)
  Sender: FDA-Public Use
  Company Number: DE-ROCHE-1902017

PATIENT
  Sex: Female

DRUGS (1)
  1. MABTHERA [Suspect]
     Active Substance: RITUXIMAB
     Indication: RHEUMATOID ARTHRITIS
     Route: 042

REACTIONS (8)
  - Urinary tract infection [Unknown]
  - Hypogammaglobulinaemia [Unknown]
  - Sepsis [Fatal]
  - Immunodeficiency [Unknown]
  - Sjogren^s syndrome [Unknown]
  - Dysuria [Unknown]
  - Vulval ulceration [Unknown]
  - Vulvitis [Unknown]

NARRATIVE: CASE EVENT DATE: 201511
